FAERS Safety Report 5239943-8 (Version None)
Quarter: 2007Q1

REPORT INFORMATION
  Report Type: 
  Country: None (occurrence: None)
  Receive Date: 20070216
  Receipt Date: 20070207
  Transmission Date: 20070707
  Serious: Yes (Hospitalization)
  Sender: FDA-Public Use
  Company Number: FR-PFIZER INC-2006073161

PATIENT
  Sex: Female
  Weight: 56 kg

DRUGS (4)
  1. SU-011,248 [Suspect]
     Indication: HEPATIC NEOPLASM MALIGNANT
     Route: 048
  2. PRETERAX [Concomitant]
     Route: 048
  3. SMECTITE [Concomitant]
     Route: 048
  4. PRIMPERAN [Concomitant]
     Route: 048

REACTIONS (2)
  - ASTHENIA [None]
  - LOSS OF CONSCIOUSNESS [None]
